FAERS Safety Report 8431706-5 (Version None)
Quarter: 2012Q2

REPORT INFORMATION
  Report Type: 
  Country: None (occurrence: None)
  Receive Date: 20120613
  Receipt Date: 20120605
  Transmission Date: 20120825
  Serious: Yes (Other)
  Sender: FDA-Public Use
  Company Number: FR-JNJFOC-20120401460

PATIENT
  Sex: Male
  Weight: 64 kg

DRUGS (2)
  1. BETAMETHASONE [Concomitant]
     Indication: PSORIASIS
     Route: 003
  2. STELARA [Suspect]
     Indication: PSORIASIS
     Route: 058
     Dates: start: 20120323

REACTIONS (4)
  - PRURITUS [None]
  - ANAL FISTULA INFECTION [None]
  - FATIGUE [None]
  - ASTHENIA [None]
